FAERS Safety Report 15691734 (Version 1)
Quarter: 2018Q4

REPORT INFORMATION
  Report Type: Spontaneous
  Country: CA (occurrence: CA)
  Receive Date: 20181205
  Receipt Date: 20181205
  Transmission Date: 20190205
  Serious: Yes (Hospitalization, Other)
  Sender: FDA-Public Use
  Company Number: CA-ALLERGAN-1856240US

PATIENT
  Age: 33 Year
  Sex: Female
  Weight: 149 kg

DRUGS (9)
  1. CONTRACEPTIVES [Concomitant]
     Active Substance: UNSPECIFIED INGREDIENT
     Indication: PRODUCT USED FOR UNKNOWN INDICATION
     Dosage: UNK UNK, UNKNOWN
     Route: 065
  2. SULCRATE [Suspect]
     Active Substance: SUCRALFATE
     Indication: DYSPHAGIA
  3. SULCRATE [Suspect]
     Active Substance: SUCRALFATE
     Indication: ABDOMINAL PAIN UPPER
     Dosage: UNK, UNKNOWN
     Route: 048
  4. ANTIBIOTICS [Concomitant]
     Active Substance: UNSPECIFIED INGREDIENT
     Indication: PRODUCT USED FOR UNKNOWN INDICATION
     Dosage: UNK UNK, UNKNOWN
     Route: 065
  5. BUPROPION. [Concomitant]
     Active Substance: BUPROPION
     Indication: PRODUCT USED FOR UNKNOWN INDICATION
     Dosage: UNK UNK, UNKNOWN
     Route: 065
  6. SULCRATE [Suspect]
     Active Substance: SUCRALFATE
     Indication: ABDOMINAL DISTENSION
  7. SULCRATE [Suspect]
     Active Substance: SUCRALFATE
     Indication: NAUSEA
  8. SULCRATE [Suspect]
     Active Substance: SUCRALFATE
     Indication: ODYNOPHAGIA
  9. PANTOPRAZOLE [Concomitant]
     Active Substance: PANTOPRAZOLE
     Indication: PRODUCT USED FOR UNKNOWN INDICATION
     Dosage: UNK UNK, UNKNOWN
     Route: 065

REACTIONS (5)
  - Pregnancy [Unknown]
  - Disease progression [Recovered/Resolved]
  - Lithiasis [Unknown]
  - Off label use [Unknown]
  - Selective abortion [Unknown]
